FAERS Safety Report 5381228-3 (Version None)
Quarter: 2007Q3

REPORT INFORMATION
  Report Type: 
  Country: None (occurrence: None)
  Receive Date: 20070706
  Receipt Date: 20070625
  Transmission Date: 20080115
  Serious: Yes (Hospitalization)
  Sender: FDA-Public Use
  Company Number: FR-PFIZER INC-2007053385

PATIENT
  Age: 70 Year
  Sex: Male

DRUGS (6)
  1. CHAMPIX [Suspect]
  2. PREVISCAN [Concomitant]
  3. PLAVIX [Concomitant]
  4. LASIX [Concomitant]
  5. DIGOXIN [Concomitant]
  6. HYZAAR [Concomitant]

REACTIONS (4)
  - ARRHYTHMIA [None]
  - ATRIAL FIBRILLATION [None]
  - CARDIAC FAILURE [None]
  - PULMONARY OEDEMA [None]
